FAERS Safety Report 7050569-6 (Version None)
Quarter: 2010Q4

REPORT INFORMATION
  Report Type: 
  Country: None (occurrence: None)
  Receive Date: 20101018
  Receipt Date: 20101008
  Transmission Date: 20110411
  Serious: Yes (Hospitalization)
  Sender: FDA-Public Use
  Company Number: CA-MYLANLABS-2006S1009809

PATIENT
  Age: 58 Year
  Sex: Female
  Weight: 109 kg

DRUGS (4)
  1. SUNITINIB MALATE [Suspect]
     Indication: RENAL CELL CARCINOMA
     Route: 048
     Dates: start: 20060524, end: 20060604
  2. SUNITINIB MALATE [Suspect]
     Route: 048
     Dates: start: 20060706, end: 20060719
  3. SUNITINIB MALATE [Suspect]
     Route: 048
     Dates: start: 20060817, end: 20060901
  4. METHYLDOPA [Suspect]
     Dates: start: 20050501, end: 20060912

REACTIONS (2)
  - DEHYDRATION [None]
  - HYPERTENSION [None]
